FAERS Safety Report 19288039 (Version 9)
Quarter: 2022Q2

REPORT INFORMATION
  Report Type: Spontaneous
  Country: IT (occurrence: IT)
  Receive Date: 20210521
  Receipt Date: 20220517
  Transmission Date: 20220721
  Serious: Yes (Hospitalization, Other)
  Sender: FDA-Public Use
  Company Number: IT-BIOGEN-2021BI01011472

PATIENT
  Age: 46 Year
  Sex: Male

DRUGS (3)
  1. TYSABRI [Suspect]
     Active Substance: NATALIZUMAB
     Indication: Multiple sclerosis
     Dosage: FIRST 4 DOSES
     Route: 065
     Dates: start: 20180806, end: 201811
  2. TYSABRI [Suspect]
     Active Substance: NATALIZUMAB
     Route: 065
     Dates: start: 201901, end: 20210211
  3. SARS-CoV-2 vaccine [Concomitant]
     Indication: COVID-19 prophylaxis
     Route: 065
     Dates: end: 2021

REACTIONS (7)
  - Progressive multifocal leukoencephalopathy [Not Recovered/Not Resolved]
  - Immune reconstitution inflammatory syndrome [Not Recovered/Not Resolved]
  - Enterocolitis haemorrhagic [Unknown]
  - Septic shock [Unknown]
  - Ileus paralytic [Unknown]
  - Prescribed underdose [Recovered/Resolved]
  - Herpes zoster [Unknown]

NARRATIVE: CASE EVENT DATE: 20190101
